FAERS Safety Report 5387276-1 (Version None)
Quarter: 2007Q3

REPORT INFORMATION
  Report Type: 
  Country: None (occurrence: None)
  Receive Date: 20070716
  Receipt Date: 20070710
  Transmission Date: 20080115
  Serious: Yes (Hospitalization, Other)
  Sender: FDA-Public Use
  Company Number: PHEH2007US09824

PATIENT
  Age: 59 Year
  Sex: Female

DRUGS (5)
  1. FEMARA [Suspect]
     Indication: BREAST CANCER
     Dates: start: 20040101
  2. LEXAPRO [Concomitant]
  3. SYNTHROID [Concomitant]
  4. VITAMIN CAP [Concomitant]
  5. CHONDROITIN SULFATE [Concomitant]

REACTIONS (9)
  - CARDIOMYOPATHY [None]
  - COUGH [None]
  - DISEASE RECURRENCE [None]
  - ECHOCARDIOGRAM ABNORMAL [None]
  - EJECTION FRACTION DECREASED [None]
  - MYOPATHY [None]
  - NASOPHARYNGITIS [None]
  - PAIN IN EXTREMITY [None]
  - PULMONARY OEDEMA [None]
